FAERS Safety Report 4733656-4 (Version None)
Quarter: 2005Q3

REPORT INFORMATION
  Report Type: 
  Country: None (occurrence: None)
  Receive Date: 20050729
  Receipt Date: 20050624
  Transmission Date: 20060218
  Serious: No
  Sender: FDA-Public Use
  Company Number: COT_0118_2005

PATIENT
  Age: 50 Year
  Sex: Male
  Weight: 108.8633 kg

DRUGS (10)
  1. VENTAVIS [Suspect]
     Indication: PULMONARY HYPERTENSION
     Dosage: 30 MCG DAILY IH
     Route: 055
     Dates: start: 20050608
  2. LASIX [Concomitant]
  3. ALBUTEROL [Concomitant]
  4. MULTI-VITAMIN [Concomitant]
  5. COMBIVENT [Concomitant]
  6. LISINOPRIL [Concomitant]
  7. DIGITEK [Concomitant]
  8. TRACLEER [Concomitant]
  9. ASPIRIN [Concomitant]
  10. VENTAVIS [Suspect]

REACTIONS (1)
  - PHARYNGOLARYNGEAL PAIN [None]
